FAERS Safety Report 18097698 (Version 1)
Quarter: 2020Q3

REPORT INFORMATION
  Report Type: Spontaneous
  Country: US (occurrence: US)
  Receive Date: 20200730
  Receipt Date: 20200730
  Transmission Date: 20201103
  Serious: No
  Sender: FDA-Public Use
  Company Number: US-SA-2020SA198069

PATIENT

DRUGS (2)
  1. KEVZARA [Suspect]
     Active Substance: SARILUMAB
     Indication: RHEUMATOID ARTHRITIS
     Dosage: 200 MG, QOW
     Route: 058
     Dates: start: 20200527
  2. ORENCIA [Concomitant]
     Active Substance: ABATACEPT

REACTIONS (4)
  - Fatigue [Unknown]
  - Injection site rash [Unknown]
  - Urinary tract infection [Unknown]
  - Condition aggravated [Unknown]

NARRATIVE: CASE EVENT DATE: 2020
